FAERS Safety Report 4411246-0 (Version None)
Quarter: 2004Q3

REPORT INFORMATION
  Report Type: 
  Country: None (occurrence: None)
  Receive Date: 20040727
  Receipt Date: 20040713
  Transmission Date: 20050211
  Serious: No
  Sender: FDA-Public Use
  Company Number: B0339624A

PATIENT
  Age: 46 Year
  Sex: Female

DRUGS (7)
  1. PAXIL [Suspect]
     Dosage: PER DAY
  2. WELLBUTRIN [Suspect]
     Dosage: 150 MG / PER DAY
  3. TRAZODONE HCL [Suspect]
     Dosage: PER DAY
  4. LITHIUM CARBONATE [Concomitant]
  5. LORAZEPAM [Concomitant]
  6. CYPROHEPTADINE HCL [Concomitant]
  7. ORAL CONTRACEPTIVE [Concomitant]

REACTIONS (9)
  - ALANINE AMINOTRANSFERASE INCREASED [None]
  - ASPARTATE AMINOTRANSFERASE INCREASED [None]
  - CAROTID ARTERY OCCLUSION [None]
  - CAROTID ARTERY THROMBOSIS [None]
  - CEREBRAL INFARCTION [None]
  - EPSTEIN-BARR VIRUS INFECTION [None]
  - ISCHAEMIC STROKE [None]
  - LYMPHOCYTE MORPHOLOGY ABNORMAL [None]
  - SPLENOMEGALY [None]
